FAERS Safety Report 19784423 (Version 4)
Quarter: 2022Q2

REPORT INFORMATION
  Report Type: Spontaneous
  Country: US (occurrence: US)
  Receive Date: 20210903
  Receipt Date: 20220620
  Transmission Date: 20220721
  Serious: Yes (Other)
  Sender: FDA-Public Use
  Company Number: US-SA-SAC20210831000289

PATIENT
  Age: 32 Year
  Sex: Male

DRUGS (10)
  1. ALPROLIX [Suspect]
     Active Substance: EFTRENONACOG ALFA
     Indication: Factor IX deficiency
     Dosage: 3266 IU, QW
     Route: 042
     Dates: start: 202001
  2. ALPROLIX [Suspect]
     Active Substance: EFTRENONACOG ALFA
     Indication: Factor IX deficiency
     Dosage: 3266 IU, QW
     Route: 042
     Dates: start: 202001
  3. ALPROLIX [Suspect]
     Active Substance: EFTRENONACOG ALFA
     Dosage: 534 IU, QW
     Route: 042
     Dates: start: 20210728
  4. ALPROLIX [Suspect]
     Active Substance: EFTRENONACOG ALFA
     Dosage: 534 IU, QW
     Route: 042
     Dates: start: 20210728
  5. ALPROLIX [Suspect]
     Active Substance: EFTRENONACOG ALFA
     Dosage: 3285 IU, QW
     Route: 042
     Dates: start: 20210728, end: 2021
  6. ALPROLIX [Suspect]
     Active Substance: EFTRENONACOG ALFA
     Dosage: 3285 IU, QW
     Route: 042
     Dates: start: 20210728, end: 2021
  7. ALPROLIX [Suspect]
     Active Substance: EFTRENONACOG ALFA
     Dosage: 3266 IU, QW
     Route: 042
     Dates: start: 202109, end: 2021
  8. ALPROLIX [Suspect]
     Active Substance: EFTRENONACOG ALFA
     Dosage: 3266 IU, QW
     Route: 042
     Dates: start: 202109, end: 2021
  9. ALPROLIX [Suspect]
     Active Substance: EFTRENONACOG ALFA
     Dosage: 50 IU/KG, TIW
     Dates: start: 202111
  10. ALPROLIX [Suspect]
     Active Substance: EFTRENONACOG ALFA
     Dosage: 50 IU/KG, TIW
     Dates: start: 202111

REACTIONS (5)
  - Haemarthrosis [Recovered/Resolved]
  - Haemarthrosis [Unknown]
  - Haemorrhage [Unknown]
  - Epistaxis [Unknown]
  - Product dose omission issue [Unknown]

NARRATIVE: CASE EVENT DATE: 20210101
